FAERS Safety Report 4556865-6 (Version None)
Quarter: 2005Q1

REPORT INFORMATION
  Report Type: 
  Country: None (occurrence: None)
  Receive Date: 20050118
  Receipt Date: 20050105
  Transmission Date: 20050727
  Serious: Yes (Other)
  Sender: FDA-Public Use
  Company Number: HQWYE552922JUN04

PATIENT
  Age: 47 Year
  Sex: Female
  Weight: 106.69 kg

DRUGS (28)
  1. EFFEXOR XR [Suspect]
     Indication: DEPRESSION
     Dosage: SEE IMAGE
     Route: 048
     Dates: start: 20001201, end: 20020101
  2. EFFEXOR XR [Suspect]
     Indication: DEPRESSION
     Dosage: SEE IMAGE
     Route: 048
     Dates: start: 20020101, end: 20021201
  3. DIOVAN HCT [Concomitant]
  4. NEXIUM [Concomitant]
  5. DITROPAN XL (OXYBUTYNIN) [Concomitant]
  6. CELEBREX [Concomitant]
  7. ZYRTEC [Concomitant]
  8. NEURONTIN [Concomitant]
  9. MACROBID [Concomitant]
  10. NAPROXEN [Concomitant]
  11. SERZONE [Concomitant]
  12. SMZ-TMP-DS (SULFAMETHOXAZOLE/TRIMETHOPRIM) [Concomitant]
  13. LIQUIBID (GUAIFENESIN) [Concomitant]
  14. LEVAQUIN [Concomitant]
  15. CEFTIN [Concomitant]
  16. CLARITIN [Concomitant]
  17. WELLBUTRIN [Concomitant]
  18. CLONAZEPAM [Concomitant]
  19. SKELAXIN [Concomitant]
  20. HYOSCYAMINE (HYOSCYAMINE) [Concomitant]
  21. NASONEX [Concomitant]
  22. ACLOVATE (ALCLOMETASONE DIPROPIONATE) [Concomitant]
  23. TRIMOX [Concomitant]
  24. PROMETRIUM [Concomitant]
  25. TEQUIN [Concomitant]
  26. CYCLOBENZAPRINE (CYCLOBENZAPRINE) [Concomitant]
  27. CEFUROXIME [Concomitant]
  28. AUGMENTIN [Concomitant]

REACTIONS (17)
  - ANXIETY [None]
  - ASTHENIA [None]
  - BRUXISM [None]
  - CHEST PAIN [None]
  - CONFUSIONAL STATE [None]
  - DISTURBANCE IN ATTENTION [None]
  - DIZZINESS [None]
  - DRUG DEPENDENCE [None]
  - DRUG WITHDRAWAL SYNDROME [None]
  - DYSPHEMIA [None]
  - HEADACHE [None]
  - HEART RATE INCREASED [None]
  - INSOMNIA [None]
  - RESTLESSNESS [None]
  - SPEECH DISORDER [None]
  - THINKING ABNORMAL [None]
  - VISION BLURRED [None]
